FAERS Safety Report 4395286-6 (Version None)
Quarter: 2004Q3

REPORT INFORMATION
  Report Type: 
  Country: None (occurrence: None)
  Receive Date: 20040707
  Receipt Date: 20040624
  Transmission Date: 20050211
  Serious: Yes (Hospitalization)
  Sender: FDA-Public Use
  Company Number: ZANA001315

PATIENT
  Age: 38 Year
  Sex: Female
  Weight: 60 kg

DRUGS (9)
  1. ZANAFLEX [Suspect]
     Indication: MUSCLE SPASTICITY
     Dosage: 2 MG DAILY ORAL
     Route: 048
     Dates: start: 20040315, end: 20040320
  2. BACLOFEN [Concomitant]
  3. OXYBUTYNIN [Concomitant]
  4. CARBAMAZEPINE [Concomitant]
  5. PYRIDOXINE HCL TAB [Concomitant]
  6. ISONIAZID [Concomitant]
  7. ASCORBIC ACID [Concomitant]
  8. WARFARIN (WARFARIN) [Concomitant]
  9. ZINC SULPHATE (ZINC SULPHATE) [Concomitant]

REACTIONS (4)
  - DEHYDRATION [None]
  - FATIGUE [None]
  - LIVER FUNCTION TEST ABNORMAL [None]
  - SOMNOLENCE [None]
